FAERS Safety Report 7511275-4 (Version None)
Quarter: 2011Q2

REPORT INFORMATION
  Report Type: 
  Country: None (occurrence: None)
  Receive Date: 20110531
  Receipt Date: 20110120
  Transmission Date: 20111010
  Serious: Yes (Hospitalization, Other)
  Sender: FDA-Public Use
  Company Number: US-BAYER-201038459NA

PATIENT
  Sex: Female
  Weight: 72.562 kg

DRUGS (2)
  1. YASMIN [Suspect]
     Dosage: UNK
     Dates: start: 20050101, end: 20060101
  2. YAZ [Suspect]
     Dosage: UNK
     Dates: start: 20050101, end: 20060101

REACTIONS (3)
  - SUBDURAL HAEMATOMA [None]
  - PAIN [None]
  - INJURY [None]
